FAERS Safety Report 6524723-3 (Version None)
Quarter: 2010Q1

REPORT INFORMATION
  Report Type: 
  Country: None (occurrence: None)
  Receive Date: 20100104
  Receipt Date: 20091223
  Transmission Date: 20100710
  Serious: Yes (Other)
  Sender: FDA-Public Use
  Company Number: GB-JNJFOC-20080603016

PATIENT
  Age: 58 Year
  Sex: Male

DRUGS (7)
  1. CAELYX [Suspect]
     Indication: B-CELL LYMPHOMA
     Route: 065
  2. BLEOMYCIN SULPHATE [Suspect]
     Indication: B-CELL LYMPHOMA
     Route: 065
  3. CYCLOPHOSPHAMIDE [Suspect]
     Indication: B-CELL LYMPHOMA
     Route: 065
  4. ETOPOSIDE [Suspect]
     Indication: B-CELL LYMPHOMA
     Route: 065
  5. METHOTREXATE [Suspect]
     Indication: B-CELL LYMPHOMA
     Route: 065
  6. PREDNISOLONE [Suspect]
     Indication: B-CELL LYMPHOMA
     Route: 065
  7. VINCRISTINE SULFATE [Suspect]
     Indication: B-CELL LYMPHOMA
     Route: 065

REACTIONS (4)
  - BRONCHOSPASM [None]
  - DRUG HYPERSENSITIVITY [None]
  - OEDEMA PERIPHERAL [None]
  - WHEEZING [None]
